FAERS Safety Report 4489214-2 (Version None)
Quarter: 2004Q4

REPORT INFORMATION
  Report Type: 
  Country: None (occurrence: None)
  Receive Date: 20041029
  Receipt Date: 20040930
  Transmission Date: 20050328
  Serious: Yes (Other)
  Sender: FDA-Public Use
  Company Number: JP-BRISTOL-MYERS SQUIBB COMPANY-12724530

PATIENT
  Age: 59 Year
  Sex: Female

DRUGS (14)
  1. GATIFLO TABS 100 MG [Suspect]
     Indication: PNEUMONIA
     Route: 048
     Dates: start: 20040901, end: 20040902
  2. GATIFLO TABS 100 MG [Suspect]
     Indication: ATYPICAL MYCOBACTERIAL INFECTION
     Route: 048
     Dates: start: 20040901, end: 20040902
  3. GLUCOBAY [Concomitant]
     Route: 048
     Dates: start: 20021022, end: 20040917
  4. AMARYL [Concomitant]
     Route: 048
     Dates: start: 20021022, end: 20040917
  5. LOXONIN [Concomitant]
     Route: 048
     Dates: start: 20011031
  6. MUCOSTA [Concomitant]
     Route: 048
     Dates: start: 20040107
  7. SELBEX [Concomitant]
     Route: 048
     Dates: start: 20020306
  8. ALTAT [Concomitant]
     Route: 048
     Dates: start: 20020306
  9. LACB [Concomitant]
     Route: 048
     Dates: start: 20040107
  10. LENDORMIN [Concomitant]
     Route: 048
     Dates: start: 20020306
  11. NORVASC [Concomitant]
     Route: 048
     Dates: start: 20020306
  12. ADONA [Concomitant]
     Route: 048
     Dates: start: 20040107
  13. TRANSAMIN [Concomitant]
     Route: 048
     Dates: start: 20040107
  14. DEPAS [Concomitant]
     Route: 048
     Dates: start: 20020306

REACTIONS (3)
  - BLOOD GLUCOSE INCREASED [None]
  - HYPOGLYCAEMIA [None]
  - PARALYSIS [None]
